FAERS Safety Report 4346511-9 (Version None)
Quarter: 2004Q2

REPORT INFORMATION
  Report Type: 
  Country: None (occurrence: None)
  Receive Date: 20040426
  Receipt Date: 20031017
  Transmission Date: 20050107
  Serious: No
  Sender: FDA-Public Use
  Company Number: US-BRISTOL-MYERS SQUIBB COMPANY-12414256

PATIENT
  Age: 77 Year
  Sex: Female
  Weight: 61 kg

DRUGS (14)
  1. PARAPLATIN [Suspect]
     Indication: ENDOMETRIAL CANCER
     Route: 042
     Dates: start: 20031016, end: 20031016
  2. NAVELBINE [Concomitant]
     Route: 042
     Dates: start: 20031016, end: 20031016
  3. CARBOPLATIN [Concomitant]
     Route: 042
     Dates: start: 20031016
  4. MEGACE [Concomitant]
  5. LOTENSIN [Concomitant]
  6. PROCARDIA [Concomitant]
  7. DEXAMETHASONE [Concomitant]
  8. VICODIN [Concomitant]
  9. ZYRTEC [Concomitant]
  10. ZOCOR [Concomitant]
  11. POTASSIUM [Concomitant]
  12. LASIX [Concomitant]
  13. KYTRIL [Concomitant]
     Indication: PREMEDICATION
     Route: 042
     Dates: start: 20031016, end: 20031016
  14. DECADRON [Concomitant]
     Indication: PREMEDICATION
     Route: 042
     Dates: start: 20031016, end: 20031016

REACTIONS (6)
  - BLOOD PRESSURE INCREASED [None]
  - ERYTHEMA [None]
  - FEELING ABNORMAL [None]
  - FEELING HOT [None]
  - LACRIMATION INCREASED [None]
  - RASH ERYTHEMATOUS [None]
